FAERS Safety Report 6199745-5 (Version None)
Quarter: 2009Q2

REPORT INFORMATION
  Report Type: 
  Country: None (occurrence: None)
  Receive Date: 20090520
  Receipt Date: 20090520
  Transmission Date: 20091009
  Serious: Yes (Other)
  Sender: FDA-Public Use
  Company Number: None

PATIENT
  Sex: Male
  Weight: 97.0698 kg

DRUGS (2)
  1. OMEPRAZOLE [Suspect]
     Indication: BARRETT'S OESOPHAGUS
     Dosage: 40 MG BID PO
     Route: 048
     Dates: start: 20071001, end: 20081201
  2. OMEPRAZOLE [Suspect]
     Indication: ULCER
     Dosage: 40 MG BID PO
     Route: 048
     Dates: start: 20071001, end: 20081201

REACTIONS (4)
  - DRUG INEFFECTIVE [None]
  - DYSPEPSIA [None]
  - ERUCTATION [None]
  - PRODUCT SUBSTITUTION ISSUE [None]
